FAERS Safety Report 9632512 (Version 1)
Quarter: 2013Q4

REPORT INFORMATION
  Report Type: Report from Study
  Country: JP (occurrence: JP)
  Receive Date: 20131018
  Receipt Date: 20131018
  Transmission Date: 20140711
  Serious: Yes (Death, Disabling)
  Sender: FDA-Public Use
  Company Number: JP-BRISTOL-MYERS SQUIBB COMPANY-19588623

PATIENT
  Age: 87 Year
  Sex: Male

DRUGS (6)
  1. ABILIFY [Suspect]
     Indication: DEMENTIA ALZHEIMER^S TYPE
     Dosage: DOSE DECREASED FROM 10MG,23OCT13
     Route: 048
     Dates: start: 20120406, end: 20121122
  2. MEMANTINE HCL [Concomitant]
     Dosage: TABS
     Dates: start: 20120425, end: 20121122
  3. MAGMITT [Concomitant]
     Dates: start: 20120815, end: 20121122
  4. OLMETEC [Concomitant]
     Dosage: TABS
     Dates: start: 20120921, end: 20121122
  5. LANSOPRAZOLE [Concomitant]
     Dates: start: 20120921, end: 20121122
  6. ONEALFA [Concomitant]
     Dates: start: 20120921, end: 20121122

REACTIONS (1)
  - Pneumonia [Fatal]
